FAERS Safety Report 18799539 (Version 1)
Quarter: 2021Q1

REPORT INFORMATION
  Report Type: Spontaneous
  Country: US (occurrence: US)
  Receive Date: 20210128
  Receipt Date: 20210128
  Transmission Date: 20210419
  Serious: No
  Sender: FDA-Public Use
  Company Number: None

PATIENT
  Age: 34 Year
  Sex: Female

DRUGS (1)
  1. MAKENA [Suspect]
     Active Substance: HYDROXYPROGESTERONE CAPROATE
     Indication: POSTPONEMENT OF PRETERM DELIVERY
     Dosage: ?          OTHER FREQUENCY:Q 1 WEEK;?
     Route: 058
     Dates: start: 20201111

REACTIONS (2)
  - Pain [None]
  - Pyrexia [None]

NARRATIVE: CASE EVENT DATE: 20210127
